FAERS Safety Report 23787046 (Version 1)
Quarter: 2024Q2

REPORT INFORMATION
  Report Type: Spontaneous
  Country: US (occurrence: US)
  Receive Date: 20240426
  Receipt Date: 20240426
  Transmission Date: 20240715
  Serious: Yes (Hospitalization, Other)
  Sender: FDA-Public Use
  Company Number: US-ALXN-202404USA001506US

PATIENT
  Age: 52 Year
  Sex: Female

DRUGS (3)
  1. ULTOMIRIS [Suspect]
     Active Substance: RAVULIZUMAB-CWVZ
     Indication: Myasthenia gravis
     Dosage: 300 MILLIGRAM, EVERY EIGHT WEEKS
     Route: 042
     Dates: start: 202305
  2. ULTOMIRIS [Suspect]
     Active Substance: RAVULIZUMAB-CWVZ
     Dosage: 3300 MILLIGRAM, EVERY EIGHT WEEKS
     Route: 042
     Dates: start: 202307
  3. OZEMPIC [Concomitant]
     Active Substance: SEMAGLUTIDE
     Indication: Product used for unknown indication
     Dosage: UNK
     Route: 065

REACTIONS (3)
  - Anaemia [Unknown]
  - Viral infection [Unknown]
  - Myasthenia gravis [Unknown]

NARRATIVE: CASE EVENT DATE: 20240330
